FAERS Safety Report 4308517-5 (Version None)
Quarter: 2004Q1

REPORT INFORMATION
  Report Type: 
  Country: None (occurrence: None)
  Receive Date: 20040301
  Receipt Date: 20040220
  Transmission Date: 20041129
  Serious: Yes (Hospitalization)
  Sender: FDA-Public Use
  Company Number: ES-BRISTOL-MYERS SQUIBB COMPANY-12513644

PATIENT
  Age: 69 Year
  Sex: Male
  Weight: 50 kg

DRUGS (6)
  1. TAXOL [Suspect]
     Indication: LUNG ADENOCARCINOMA
     Route: 042
     Dates: start: 20040202, end: 20040202
  2. OXALIPLATIN [Suspect]
     Indication: LUNG ADENOCARCINOMA
     Route: 042
     Dates: start: 20040202, end: 20040202
  3. DUPHALAC [Concomitant]
     Route: 048
     Dates: start: 20040203
  4. PRIMPERAN INJ [Concomitant]
     Route: 048
     Dates: start: 20040203
  5. LOSEC [Concomitant]
     Route: 048
     Dates: start: 20040203
  6. ACFOL [Concomitant]
     Route: 048
     Dates: start: 20040203

REACTIONS (7)
  - ANOREXIA [None]
  - ASTHENIA [None]
  - DIARRHOEA [None]
  - MELAENA [None]
  - NAUSEA [None]
  - NEUTROPENIA [None]
  - VOMITING [None]
